FAERS Safety Report 7561417-X (Version None)
Quarter: 2011Q2

REPORT INFORMATION
  Report Type: 
  Country: None (occurrence: None)
  Receive Date: 20110621
  Receipt Date: 20100608
  Transmission Date: 20111010
  Serious: No
  Sender: FDA-Public Use
  Company Number: US-ASTRAZENECA-2010SE26542

PATIENT
  Age: 807 Month
  Sex: Female

DRUGS (7)
  1. COZAAR [Concomitant]
  2. PULMICORT FLEXHALER [Suspect]
     Dosage: 180 MG 2 PUFFS ONCE A DAY
     Route: 055
     Dates: start: 20100525
  3. MODURETIC 5-50 [Concomitant]
  4. MULTIVITAMIN WITH EXTRA B12 [Concomitant]
  5. PULMICORT FLEXHALER [Suspect]
     Dosage: 180 MG 2 PUFFS TWO TIMES A DAY
     Route: 055
  6. PRILOSEC [Suspect]
     Route: 048
  7. PULMICORT FLEXHALER [Suspect]
     Indication: DYSPNOEA
     Route: 055
     Dates: start: 20090901, end: 20091001

REACTIONS (4)
  - ABDOMINAL DISCOMFORT [None]
  - DRUG INEFFECTIVE [None]
  - INSOMNIA [None]
  - INCORRECT DOSE ADMINISTERED [None]
